FAERS Safety Report 25907415 (Version 1)
Quarter: 2025Q4

REPORT INFORMATION
  Report Type: Spontaneous
  Country: US (occurrence: US)
  Receive Date: 20251010
  Receipt Date: 20251010
  Transmission Date: 20260119
  Serious: Yes (Other)
  Sender: NOVO NORDISK
  Company Number: US-NOVOPROD-1534356

PATIENT
  Age: 72 Year
  Sex: Female

DRUGS (1)
  1. RYBELSUS [Suspect]
     Active Substance: SEMAGLUTIDE
     Indication: Type 2 diabetes mellitus
     Dosage: 2 PILLS ONCE DAILY TO GET 6MG
     Route: 048
     Dates: start: 2024

REACTIONS (6)
  - Upper limb fracture [Unknown]
  - Fine motor skill dysfunction [Unknown]
  - Feeling abnormal [Unknown]
  - Malaise [Unknown]
  - Gastrointestinal disorder [Unknown]
  - Wrong technique in product usage process [Unknown]

NARRATIVE: CASE EVENT DATE: 20240101
